FAERS Safety Report 4393248-6 (Version None)
Quarter: 2004Q3

REPORT INFORMATION
  Report Type: 
  Country: None (occurrence: None)
  Receive Date: 20040702
  Receipt Date: 20040621
  Transmission Date: 20050211
  Serious: Yes (Hospitalization)
  Sender: FDA-Public Use
  Company Number: ES-JNJFOC-20040605776

PATIENT
  Age: 33 Year
  Sex: Female

DRUGS (3)
  1. REMICADE [Suspect]
     Indication: RHEUMATOID ARTHRITIS
     Dosage: 3 MG/KG INTRAVENOUS
     Route: 042
     Dates: start: 20030101
  2. METHOTREXATE [Concomitant]
  3. DEFLAZACORT [Concomitant]

REACTIONS (3)
  - CHILLS [None]
  - COUGH [None]
  - LYMPH NODE TUBERCULOSIS [None]
